FAERS Safety Report 16707331 (Version 1)
Quarter: 2019Q3

REPORT INFORMATION
  Report Type: Spontaneous
  Country: US (occurrence: US)
  Receive Date: 20190815
  Receipt Date: 20190815
  Transmission Date: 20191004
  Serious: Yes (Other)
  Sender: FDA-Public Use
  Company Number: US-ELI_LILLY_AND_COMPANY-US201907014482

PATIENT
  Sex: Female

DRUGS (2)
  1. HUMATROPE [Suspect]
     Active Substance: SOMATROPIN
     Indication: PITUITARY HYPOPLASIA
     Dosage: 0.8 MG, UNKNOWN
     Route: 058
     Dates: start: 2015
  2. SYNTHROID [Concomitant]
     Active Substance: LEVOTHYROXINE SODIUM
     Indication: HYPOPITUITARISM
     Dosage: UNK, UNKNOWN
     Route: 065

REACTIONS (2)
  - Growth retardation [Not Recovered/Not Resolved]
  - Secondary adrenocortical insufficiency [Not Recovered/Not Resolved]
